FAERS Safety Report 8861812 (Version 1)
Quarter: 2012Q4

REPORT INFORMATION
  Report Type: Spontaneous
  Country: US (occurrence: None)
  Receive Date: 20121023
  Receipt Date: 20121023
  Transmission Date: 20130627
  Serious: Yes (Other)
  Sender: FDA-Public Use
  Company Number: AUR-APL-2012-04492

PATIENT
  Age: 70 Year
  Sex: Female

DRUGS (1)
  1. ALENDRONIC ACID (ALENDRONIC ACID) [Suspect]
     Indication: DRUG USE FOR UNKNOWN INDICATION

REACTIONS (5)
  - Breath odour [None]
  - Pain in jaw [None]
  - Hypoaesthesia oral [None]
  - Paranasal sinus hypersecretion [None]
  - Osteonecrosis of jaw [None]
